FAERS Safety Report 8800101 (Version 2)
Quarter: 2015Q1

REPORT INFORMATION
  Report Type: Report from Study
  Country: US (occurrence: US)
  Receive Date: 20120921
  Receipt Date: 20150327
  Transmission Date: 20150721
  Serious: Yes (Death)
  Sender: FDA-Public Use
  Company Number: US-ROCHE-1127886

PATIENT
  Sex: Male

DRUGS (32)
  1. AVASTIN [Suspect]
     Active Substance: BEVACIZUMAB
     Dosage: RECEIVED ON 07/NOV/2007 (CYCLE 15, DAY 1)
     Route: 042
  2. AVASTIN [Suspect]
     Active Substance: BEVACIZUMAB
     Dosage: RECEIVED ON 11/APR/2007 (CYCLE 7), 25/APR/2007 (CYCLE 8, DAY 1), 15/MAY/2007 (CYCLE 9, DAY 1), 11/JU
     Route: 042
  3. OXALIPLATIN. [Concomitant]
     Active Substance: OXALIPLATIN
     Dosage: RECEIVED ON 11/APR/2007 (CYCLE 7), 25/APR/2007 (CYCLE 8, DAY 1), 15/MAY/2007 (CYCLE 9, DAY 1), 12/JU
     Route: 042
  4. AVASTIN [Suspect]
     Active Substance: BEVACIZUMAB
     Indication: MALIGNANT NEOPLASM OF ISLETS OF LANGERHANS
     Dosage: RECEIVED ON 21/FEB/2007 (CYCLE 5, DAY1), 14/MAR/2007 (CYCLE 6), 12/JUN/2007,
     Route: 042
  5. AVASTIN [Suspect]
     Active Substance: BEVACIZUMAB
     Dosage: RECEIVED ON 08/DEC/2006
     Route: 042
  6. AVASTIN [Suspect]
     Active Substance: BEVACIZUMAB
     Dosage: RECEIVED ON 12/DEC/2006 (CYCLE 1, DAY 1),  26/DEC/2006 (CYCLE 2, DAY 1), 15/JAN/2007 (CYCLE 3, DAY 1
     Route: 042
  7. AVASTIN [Suspect]
     Active Substance: BEVACIZUMAB
     Dosage: RECEIVED ON 05/SEP/2007
     Route: 042
  8. AVASTIN [Suspect]
     Active Substance: BEVACIZUMAB
     Dosage: RECEIVED ON 09/OCT/2007
     Route: 042
  9. ANZEMET [Concomitant]
     Active Substance: DOLASETRON MESYLATE
     Dosage: RECEIVED ON 08/DEC/2006, 12/DEC/2006 (CYCLE 1, DAY 1), 14/DEC/2006 (CYCLE 1, DAY 3), 26/DEC/2006 (CY
     Route: 042
  10. OXALIPLATIN. [Concomitant]
     Active Substance: OXALIPLATIN
     Dosage: RECEIVED ON 12/DEC/2006 (CYCLE 1, DAY 1), 26/DEC/2006 (CYCLE 2, DAY 1), 15/JAN/2007 (CYCLE 3, DAY 1)
     Route: 042
  11. LEUCOVORIN [Concomitant]
     Active Substance: LEUCOVORIN
     Dosage: RECEIVED ON 05/FEB/2007, 21/FEB/2007 (CYCLE 5, DAY1), 14/MAR/2007 (CYCLE 6), 11/APR/2007 (CYCLE 7),
     Route: 042
  12. 5-FLUOROURACIL [Concomitant]
     Active Substance: FLUOROURACIL
     Dosage: PUMP, RECEIVED ON 12/DEC/2006 (CYCLE 1, DAY 1), 26/DEC/2006 (CYCLE 2, DAY 1)
     Route: 042
  13. 5-FLUOROURACIL [Concomitant]
     Active Substance: FLUOROURACIL
     Dosage: BOLUS RECEIVED ON 15/JAN/2007 (CYCLE 3, DAY 1)
     Route: 042
  14. 5-FLUOROURACIL [Concomitant]
     Active Substance: FLUOROURACIL
     Dosage: PUMP, RECEIVED ON 05/FEB/2007, 07/FEB/2007, 21/FEB/2007 (CYCLE 5, DAY1), 14/MAR/2007 (CYCLE 6), 11/A
     Route: 042
  15. SANDOSTATIN [Concomitant]
     Active Substance: OCTREOTIDE ACETATE
     Dosage: RECEIVED ON 08/DEC/2006, 09/JAN/2007,  07/FEB/2007, 12/JUN/2007, 11/JUL/2007, 08/AUG/2007, 07/NOV/20
     Route: 065
  16. CALCIUM GLUCONATE. [Concomitant]
     Active Substance: CALCIUM GLUCONATE
     Dosage: RECEIVED ON 12/DEC/2006 (CYCLE 1, DAY 1), 26/DEC/2006 (CYCLE 2, DAY 1), 15/JAN/2007 (CYCLE 3, DAY 1)
     Route: 065
  17. MAGNESIUM SULFATE. [Concomitant]
     Active Substance: MAGNESIUM SULFATE
     Dosage: RECEIVED ON 12/DEC/2006 (CYCLE 1, DAY 1), 26/DEC/2006 (CYCLE 2, DAY 1), 15/JAN/2007 (CYCLE 3, DAY 1)
     Route: 065
  18. VITAMIN B12 [Concomitant]
     Active Substance: CYANOCOBALAMIN
     Dosage: RECEIVED ON 14/MAR/2007 (CYCLE 6), 15/MAY/2007 (CYCLE 9, DAY 1), 09/OCT/2007, 07/NOV/2007 (CYCLE 15,
     Route: 065
  19. PEPCID [Concomitant]
     Active Substance: FAMOTIDINE
     Dosage: RECEIVED ON 05/FEB/2007, 21/FEB/2007 (CYCLE 5, DAY1), 15/MAY/2007 (CYCLE 9, DAY 1), 12/JUN/2007, 08/
     Route: 065
  20. AVASTIN [Suspect]
     Active Substance: BEVACIZUMAB
     Indication: METASTASES TO LIVER
     Dosage: RECEIVED ON 10/NOV/2006
     Route: 042
  21. LEUCOVORIN [Concomitant]
     Active Substance: LEUCOVORIN
     Dosage: RECEIVED ON 12/DEC/2006 (CYCLE 1, DAY 1), 26/DEC/2006 (CYCLE 2, DAY 1),
     Route: 042
  22. 5-FLUOROURACIL [Concomitant]
     Active Substance: FLUOROURACIL
     Dosage: PUMP, RECEIVED ON 15/JAN/2007 (CYCLE 3, DAY 1)
     Route: 042
  23. 5-FLUOROURACIL [Concomitant]
     Active Substance: FLUOROURACIL
     Dosage: BOLUS RECEIVED ON 05/FEB/2007, 21/FEB/2007 (CYCLE 5, DAY1), 14/MAR/2007 (CYCLE 6), 11/APR/2007 (CYCL
     Route: 042
  24. ATIVAN [Concomitant]
     Active Substance: LORAZEPAM
     Dosage: RECEIVED ON 15/MAY/2007 (CYCLE 9, DAY 1)
     Route: 065
  25. AVASTIN [Suspect]
     Active Substance: BEVACIZUMAB
     Dosage: RECEIVED ON 05/FEB/2007
     Route: 042
  26. LEUCOVORIN [Concomitant]
     Active Substance: LEUCOVORIN
     Dosage: RECEIVED ON 15/JAN/2007 (CYCLE 3, DAY 1)
     Route: 042
  27. DECADRON [Concomitant]
     Active Substance: DEXAMETHASONE
     Dosage: RECEIVED ON 08/DEC/2006, 12/DEC/2006 (CYCLE 1, DAY 1), 14/DEC/2006 (CYCLE 1, DAY 3), 26/DEC/2006 (CY
     Route: 042
  28. 5-FLUOROURACIL [Concomitant]
     Active Substance: FLUOROURACIL
     Dosage: BOLUS RECEIVED ON 12/DEC/2006 (CYCLE 1, DAY 1), 26/DEC/2006 (CYCLE 2, DAY 1)
     Route: 042
  29. AVASTIN [Suspect]
     Active Substance: BEVACIZUMAB
     Route: 042
  30. DECADRON [Concomitant]
     Active Substance: DEXAMETHASONE
     Dosage: RECEIVED ON 21/MAY/2007
     Route: 042
  31. TYLENOL [Concomitant]
     Active Substance: ACETAMINOPHEN
     Dosage: RECEIVED ON 26/DEC/2006 (CYCLE 2, DAY 1), 05/FEB/2007, 14/MAR/2007 (CYCLE 6), 11/APR/2007 (CYCLE 7),
     Route: 065
  32. HEPARIN FLUSH [Concomitant]
     Dosage: 500 UNITS; RECEIVED ON 14/DEC/2006, 15/JAN/2007 (CYCLE 3, DAY 1), 16/MAR/2007, 13/APR/2007, 27/APR/2
     Route: 065

REACTIONS (2)
  - Off label use [Unknown]
  - Death [Fatal]
